FAERS Safety Report 8734670 (Version 2)
Quarter: 2013Q4

REPORT INFORMATION
  Report Type: Spontaneous
  Country: ES (occurrence: ES)
  Receive Date: 20120810
  Receipt Date: 20131031
  Transmission Date: 20140711
  Serious: Yes (Other)
  Sender: FDA-Public Use
  Company Number: ES-MERCK-1208ESP001980

PATIENT
  Age: 71 Year
  Sex: Male

DRUGS (1)
  1. EFFICIB [Suspect]
     Indication: TYPE 2 DIABETES MELLITUS
     Dosage: UNK, BID
     Route: 048
     Dates: start: 20120308, end: 20120517

REACTIONS (2)
  - Paraesthesia [Recovered/Resolved]
  - Dysaesthesia [Recovered/Resolved]
